FAERS Safety Report 8196961-8 (Version None)
Quarter: 2012Q1

REPORT INFORMATION
  Report Type: 
  Country: None (occurrence: None)
  Receive Date: 20120309
  Receipt Date: 20120302
  Transmission Date: 20120608
  Serious: Yes (Other)
  Sender: FDA-Public Use
  Company Number: US-SANOFI-AVENTIS-2012SA008111

PATIENT
  Age: 87 Year
  Sex: Female

DRUGS (5)
  1. ALL OTHER THERAPEUTIC PRODUCTS [Concomitant]
  2. METOPROLOL SUCCINATE [Concomitant]
     Indication: HYPERTENSION
  3. ALLEGRA [Suspect]
     Route: 048
     Dates: start: 20120207, end: 20120212
  4. LOSARTAN POTASSIUM [Concomitant]
     Indication: HYPERTENSION
  5. HYDROCHLOROTHIAZIDE [Concomitant]
     Indication: HYPERTENSION

REACTIONS (4)
  - HALLUCINATION [None]
  - CONFUSIONAL STATE [None]
  - CONDITION AGGRAVATED [None]
  - OFF LABEL USE [None]
